FAERS Safety Report 14410377 (Version 1)
Quarter: 2018Q1

REPORT INFORMATION
  Report Type: Spontaneous
  Country: US (occurrence: US)
  Receive Date: 20180119
  Receipt Date: 20180119
  Transmission Date: 20180509
  Serious: No
  Sender: FDA-Public Use
  Company Number: US-APOTEX-2017AP022438

PATIENT
  Sex: Male

DRUGS (1)
  1. PAROXETINE. [Suspect]
     Active Substance: PAROXETINE
     Indication: PRODUCT USED FOR UNKNOWN INDICATION
     Dosage: ESCALATING DOSES
     Route: 065

REACTIONS (6)
  - Ejaculation disorder [Recovered/Resolved]
  - Blood testosterone decreased [Unknown]
  - Sexual dysfunction [Recovered/Resolved]
  - Spermatozoa abnormal [Recovered/Resolved]
  - Condition aggravated [Recovered/Resolved]
  - Erectile dysfunction [Recovered/Resolved]
